FAERS Safety Report 19573721 (Version 1)
Quarter: 2021Q3

REPORT INFORMATION
  Report Type: Report from Study
  Country: ES (occurrence: ES)
  Receive Date: 20210717
  Receipt Date: 20210717
  Transmission Date: 20211014
  Serious: Yes (Other)
  Sender: FDA-Public Use
  Company Number: ES-TAKEDA-2021TUS043241

PATIENT
  Age: 45 Year
  Sex: Male

DRUGS (8)
  1. TEDUGLUTIDE [Suspect]
     Active Substance: TEDUGLUTIDE
     Indication: PRODUCT USED FOR UNKNOWN INDICATION
     Dosage: 1.400 MILLIGRAM(0.0300 MG/KG), QD
     Route: 065
     Dates: start: 20190130, end: 20191015
  2. TEDUGLUTIDE [Suspect]
     Active Substance: TEDUGLUTIDE
     Indication: PRODUCT USED FOR UNKNOWN INDICATION
     Dosage: 1.400 MILLIGRAM(0.0300 MG/KG), QD
     Route: 065
     Dates: start: 20190130, end: 20191015
  3. TEDUGLUTIDE [Suspect]
     Active Substance: TEDUGLUTIDE
     Indication: PRODUCT USED FOR UNKNOWN INDICATION
     Dosage: 1.400 MILLIGRAM(0.0300 MG/KG), QD
     Route: 065
     Dates: start: 20190130, end: 20191015
  4. RIFAXIMIN. [Concomitant]
     Active Substance: RIFAXIMIN
     Indication: GASTROINTESTINAL BACTERIAL OVERGROWTH
     Dosage: 2 CAPS, TID
     Route: 048
     Dates: start: 20201216
  5. PARACETAMOL [Concomitant]
     Active Substance: ACETAMINOPHEN
     Indication: PYREXIA
     Dosage: 1 CAP, TID
     Route: 048
     Dates: start: 20190519, end: 20190520
  6. TEDUGLUTIDE [Suspect]
     Active Substance: TEDUGLUTIDE
     Indication: PRODUCT USED FOR UNKNOWN INDICATION
     Dosage: 1.400 MILLIGRAM(0.0300 MG/KG), QD
     Route: 065
     Dates: start: 20190130, end: 20191015
  7. SODIUM BICARBONATE. [Concomitant]
     Active Substance: SODIUM BICARBONATE
     Indication: METABOLIC ACIDOSIS
     Dosage: 500 MILLIGRAM, TID
     Route: 048
     Dates: start: 20200210
  8. HIDROFEROL [Concomitant]
     Active Substance: CALCIFEDIOL
     Indication: PRODUCT USED FOR UNKNOWN INDICATION
     Dosage: 266.00 MILLIGRAM, 1/WEEK
     Route: 048
     Dates: start: 20150714

REACTIONS (1)
  - Nephrolithiasis [Not Recovered/Not Resolved]

NARRATIVE: CASE EVENT DATE: 20201022
